FAERS Safety Report 14610284 (Version 8)
Quarter: 2018Q2

REPORT INFORMATION
  Report Type: Report from Study
  Country: US (occurrence: US)
  Receive Date: 20180307
  Receipt Date: 20180508
  Transmission Date: 20180711
  Serious: Yes (Death, Hospitalization, Other)
  Sender: FDA-Public Use
  Company Number: US-PFIZER INC-2018085596

PATIENT
  Age: 57 Year
  Sex: Female
  Weight: 104.31 kg

DRUGS (32)
  1. VITAMIN B-6 [Concomitant]
     Active Substance: PYRIDOXINE
     Dosage: 1 TABLET, DAILY
     Route: 048
     Dates: start: 2013
  2. ATENOLOL. [Concomitant]
     Active Substance: ATENOLOL
     Dosage: 1 TABLET, DAILY
     Route: 048
     Dates: start: 20171218
  3. VITAMIN D3 [Concomitant]
     Active Substance: CHOLECALCIFEROL
     Dosage: 1 (2000 UNITS) CAPSULE, DAILY
     Route: 048
     Dates: start: 2013
  4. TUSSIONEX PENNKINETIC [Suspect]
     Active Substance: CHLORPHENIRAMINE\HYDROCODONE
     Dosage: 10-8MG/5 ML, EVERY 12 (TWELVE) HOURS AS NEEDED
     Route: 048
     Dates: start: 20180305
  5. TUMS [Concomitant]
     Active Substance: CALCIUM CARBONATE
     Dosage: UNK, AS NEEDED
     Route: 048
     Dates: start: 20171020
  6. IBRANCE [Suspect]
     Active Substance: PALBOCICLIB
     Indication: BREAST CANCER METASTATIC
     Dosage: 125 MG, ONCE DAILY (QD)
     Route: 048
     Dates: start: 20170922, end: 20171110
  7. TUSSIONEX PENNKINETIC [Suspect]
     Active Substance: CHLORPHENIRAMINE\HYDROCODONE
     Dosage: 10-8MG/5 ML, EVERY 12 (TWELVE) HOURS AS NEEDED
     Route: 048
     Dates: start: 20180307
  8. METFORMIN HYDROCHLORIDE. [Concomitant]
     Active Substance: METFORMIN HYDROCHLORIDE
     Dosage: 2 (500 MG) TABLET SR 24 HR, DAILY
     Route: 048
     Dates: start: 2015
  9. CALCIUM CARBONATE- VITAMIN D3 [Concomitant]
     Dosage: 1 TABLET, DAILY
     Route: 048
  10. CHOLECALCIFEROL [Concomitant]
     Active Substance: CHOLECALCIFEROL
     Dosage: 1000 IU, DAILY
     Route: 048
  11. VITAMIN B12 [Concomitant]
     Active Substance: CYANOCOBALAMIN
     Dosage: 1000 UG, DAILY
     Route: 048
  12. ZOFRAN [Concomitant]
     Active Substance: ONDANSETRON HYDROCHLORIDE
     Indication: NAUSEA
     Dosage: 8 MG, EVERY 8 (EIGHT) HOURS AS NEEDED
     Route: 048
  13. VITAMIN B12 [Concomitant]
     Active Substance: CYANOCOBALAMIN
     Dosage: 1 (2500 MCG) TABLET, DAILY
     Route: 048
     Dates: start: 2000
  14. TAGAMET HB [Concomitant]
     Active Substance: CIMETIDINE
     Dosage: UNK (TABLET), AS NEEDED (DAILY)
     Route: 048
     Dates: start: 20171006
  15. VITAMIN B-6 [Concomitant]
     Active Substance: PYRIDOXINE
     Dosage: 100 MG, DAILY
     Route: 048
  16. HYDRALAZINE HCL [Concomitant]
     Active Substance: HYDRALAZINE HYDROCHLORIDE
     Dosage: 1 (50 MG) TABLET, 2X/DAY
     Route: 048
     Dates: start: 2014, end: 20160901
  17. LIPITOR [Concomitant]
     Active Substance: ATORVASTATIN CALCIUM
     Dosage: 1 TABLET, 1X/DAY (EVERY EVENING)
     Route: 048
     Dates: start: 20180115
  18. TUSSIONEX PENNKINETIC [Suspect]
     Active Substance: CHLORPHENIRAMINE\HYDROCODONE
     Dosage: 10-8MG/5 ML, EVERY 12 (TWELVE) HOURS AS NEEDED
     Route: 048
     Dates: start: 20180301
  19. TUSSIONEX PENNKINETIC [Suspect]
     Active Substance: CHLORPHENIRAMINE\HYDROCODONE
     Dosage: 10-8MG/5 ML, EVERY 12 (TWELVE) HOURS AS NEEDED
     Route: 048
     Dates: start: 20180301
  20. TUSSIONEX PENNKINETIC [Suspect]
     Active Substance: CHLORPHENIRAMINE\HYDROCODONE
     Dosage: 10-8MG/5 ML, EVERY 12 (TWELVE) HOURS AS NEEDED
     Route: 048
     Dates: start: 20180304
  21. ACETAMINOPHEN. [Concomitant]
     Active Substance: ACETAMINOPHEN
     Dosage: UNK, AS NEEDED (PRN)
     Route: 048
     Dates: start: 20171020
  22. ASPIRIN. [Concomitant]
     Active Substance: ASPIRIN
     Dosage: 81 MG, DAILY
     Route: 048
     Dates: start: 20110902
  23. ATENOLOL. [Concomitant]
     Active Substance: ATENOLOL
     Dosage: 1 (25 MG) TABLET, DAILY
     Route: 048
     Dates: start: 2000
  24. ATORVASTATIN CALCIUM. [Concomitant]
     Active Substance: ATORVASTATIN CALCIUM
     Dosage: 1 (20 MG) TABLET, UNK
     Route: 048
     Dates: start: 20150223
  25. FEMARA [Concomitant]
     Active Substance: LETROZOLE
     Dosage: 2.5 MG, DAILY
     Route: 048
     Dates: start: 20171120
  26. IBRANCE [Suspect]
     Active Substance: PALBOCICLIB
     Dosage: 100 MG, ONCE DAILY (QD)
     Route: 048
     Dates: start: 20171127, end: 20180124
  27. TUSSIONEX PENNKINETIC [Suspect]
     Active Substance: CHLORPHENIRAMINE\HYDROCODONE
     Indication: COUGH
     Dosage: 10-8MG/5 ML, EVERY 12 (TWELVE) HOURS AS NEEDED
     Route: 048
     Dates: start: 20180220
  28. ASPIRIN. [Concomitant]
     Active Substance: ASPIRIN
     Dosage: 1 TABLET (ENTERIC COATED), DAILY
     Route: 048
     Dates: start: 2007
  29. TUSSIONEX PENNKINETIC [Suspect]
     Active Substance: CHLORPHENIRAMINE\HYDROCODONE
     Dosage: 10-8MG/5 ML, EVERY 12 (TWELVE) HOURS AS NEEDED
     Route: 048
     Dates: start: 20180305
  30. SPIRONOLACTONE. [Concomitant]
     Active Substance: SPIRONOLACTONE
     Dosage: 1 (25 MG) TABLET, DAILY
     Route: 048
     Dates: start: 2000
  31. PRAVASTATIN SODIUM. [Concomitant]
     Active Substance: PRAVASTATIN SODIUM
     Dosage: UNK
     Route: 048
     Dates: start: 20150205, end: 20150526
  32. ALDACTONE [Concomitant]
     Active Substance: SPIRONOLACTONE
     Dosage: 1 TABLET , DAILY
     Route: 048
     Dates: start: 20180115

REACTIONS (11)
  - Constipation [Not Recovered/Not Resolved]
  - Hyponatraemia [Not Recovered/Not Resolved]
  - Coma hepatic [Fatal]
  - Spinal osteoarthritis [Not Recovered/Not Resolved]
  - Urinary tract infection [Not Recovered/Not Resolved]
  - Transaminases abnormal [Not Recovered/Not Resolved]
  - Fatigue [Not Recovered/Not Resolved]
  - Ascites [Not Recovered/Not Resolved]
  - Acute hepatic failure [Fatal]
  - Thrombocytopenia [Not Recovered/Not Resolved]
  - Anaemia [Not Recovered/Not Resolved]

NARRATIVE: CASE EVENT DATE: 20170619
